FAERS Safety Report 19973569 (Version 1)
Quarter: 2021Q4

REPORT INFORMATION
  Report Type: Spontaneous
  Country: US (occurrence: US)
  Receive Date: 20211020
  Receipt Date: 20211020
  Transmission Date: 20220303
  Serious: Yes (Other)
  Sender: FDA-Public Use
  Company Number: None

PATIENT
  Age: 40 Year
  Sex: Female
  Weight: 40.5 kg

DRUGS (1)
  1. ALBENDAZOLE [Suspect]
     Active Substance: ALBENDAZOLE
     Indication: Ascariasis
     Dosage: ?          QUANTITY:2 TABLET(S);OTHER FREQUENCY:ONE TIME;
     Route: 048
     Dates: start: 20211004, end: 20211004

REACTIONS (3)
  - Dermatitis [None]
  - Urticaria [None]
  - Folliculitis [None]

NARRATIVE: CASE EVENT DATE: 20211005
